FAERS Safety Report 4814928-1 (Version None)
Quarter: 2005Q4

REPORT INFORMATION
  Report Type: 
  Country: None (occurrence: None)
  Receive Date: 20051028
  Receipt Date: 20050801
  Transmission Date: 20060501
  Serious: Yes (Other)
  Sender: FDA-Public Use
  Company Number: DE-NOVOPROD-245936

PATIENT
  Age: 77 Year
  Sex: Female
  Weight: 75 kg

DRUGS (6)
  1. NOVOSEVEN [Suspect]
     Indication: CEREBRAL HAEMORRHAGE
     Dosage: 20 UG/KG, SINGLE
     Route: 042
     Dates: start: 20050726, end: 20050726
  2. CEFOTAXIME [Concomitant]
     Dosage: 6 G, QID
     Route: 042
     Dates: start: 20050728
  3. NADROPARIN [Concomitant]
     Dosage: .3 G, QD
     Route: 058
     Dates: start: 20050728
  4. LEVOTHYROXINE [Concomitant]
     Dosage: 50 UG, QD
     Dates: start: 20050727
  5. METOPROLOL [Concomitant]
     Dosage: 95 MG, QD
     Route: 048
     Dates: start: 20050728
  6. POTASSIUM CHLORIDE [Concomitant]
     Dosage: 160 MMOL, QD
     Dates: start: 20050728

REACTIONS (3)
  - BLOOD PRESSURE SYSTOLIC INCREASED [None]
  - HYPOTENSION [None]
  - MYOCARDIAL INFARCTION [None]
